FAERS Safety Report 19804413 (Version 2)
Quarter: 2022Q3

REPORT INFORMATION
  Report Type: Spontaneous
  Country: US (occurrence: None)
  Receive Date: 20210908
  Receipt Date: 20220907
  Transmission Date: 20221026
  Serious: No
  Sender: FDA-Public Use
  Company Number: US-FARMAPROD-202106-0878

PATIENT
  Sex: Female

DRUGS (21)
  1. OXERVATE [Suspect]
     Active Substance: CENEGERMIN-BKBJ
     Indication: Neurotrophic keratopathy
     Route: 047
     Dates: start: 20210518, end: 20210719
  2. OZEMPIC [Concomitant]
     Active Substance: SEMAGLUTIDE
  3. OZEMPIC [Concomitant]
     Active Substance: SEMAGLUTIDE
  4. GABAPENTIN [Concomitant]
     Active Substance: GABAPENTIN
  5. HUMALOG KWIKPEN [Concomitant]
     Active Substance: INSULIN LISPRO
  6. AMLODIPINE BESYLATE [Concomitant]
     Active Substance: AMLODIPINE BESYLATE
  7. DIOVAN [Concomitant]
     Active Substance: VALSARTAN
  8. ROSUVASTATIN CALCIUM [Concomitant]
     Active Substance: ROSUVASTATIN CALCIUM
  9. VITAMIN B COMPLEX [Concomitant]
     Active Substance: CYANOCOBALAMIN\DEXPANTHENOL\NIACINAMIDE\PYRIDOXINE HYDROCHLORIDE\RIBOFLAVIN 5^-PHOSPHATE SODIUM\THIA
  10. VITAMIN C [Concomitant]
     Active Substance: ASCORBIC ACID
  11. VITAMINS [Concomitant]
     Active Substance: VITAMINS
  12. VITAMIN B12 [Concomitant]
     Active Substance: CYANOCOBALAMIN
  13. PENNSAID [Concomitant]
     Active Substance: DICLOFENAC SODIUM
     Dosage: 20 MG/G (2%)
  14. MEGARED ADVANCED [Concomitant]
  15. ADVAIR HFA [Concomitant]
     Active Substance: FLUTICASONE PROPIONATE\SALMETEROL XINAFOATE
     Dosage: 230-21 MCG
  16. CYMBALTA [Concomitant]
     Active Substance: DULOXETINE HYDROCHLORIDE
  17. OMEPRAZOLE [Concomitant]
     Active Substance: OMEPRAZOLE
  18. AUBAGIO [Concomitant]
     Active Substance: TERIFLUNOMIDE
  19. LATANOPROST [Concomitant]
     Active Substance: LATANOPROST
  20. MOXIFLOXACIN [Concomitant]
     Active Substance: MOXIFLOXACIN
     Route: 061
     Dates: start: 20210401
  21. PREDNISOLONE [Concomitant]
     Active Substance: PREDNISOLONE
     Dosage: 15 MG/ 5 ML
     Route: 061
     Dates: start: 20210415

REACTIONS (2)
  - Drug ineffective [Unknown]
  - Vision blurred [Unknown]
